FAERS Safety Report 18012906 (Version 1)
Quarter: 2020Q3

REPORT INFORMATION
  Report Type: Spontaneous
  Country: US (occurrence: US)
  Receive Date: 20200710
  Receipt Date: 20200710
  Transmission Date: 20201103
  Serious: Yes (Hospitalization)
  Sender: FDA-Public Use
  Company Number: None

PATIENT
  Sex: Female

DRUGS (30)
  1. DOFETILIDE. [Concomitant]
     Active Substance: DOFETILIDE
  2. IPRATROPIUM [Concomitant]
     Active Substance: IPRATROPIUM
  3. BREO ELLIPTA [Concomitant]
     Active Substance: FLUTICASONE FUROATE\VILANTEROL TRIFENATATE
  4. AMOX/K CLAV [Concomitant]
     Active Substance: AMOXICILLIN\CLAVULANATE POTASSIUM
  5. AUG BETAMET [Concomitant]
  6. BUDESONIDE. [Concomitant]
     Active Substance: BUDESONIDE
  7. CETIRIZINE [Concomitant]
     Active Substance: CETIRIZINE HYDROCHLORIDE
  8. CLOTRIM/BETA [Concomitant]
  9. GABAPENTIN. [Concomitant]
     Active Substance: GABAPENTIN
  10. JANUVIA [Concomitant]
     Active Substance: SITAGLIPTIN PHOSPHATE
  11. AZITHROMYCIN ANHYDROUS. [Concomitant]
     Active Substance: AZITHROMYCIN ANHYDROUS
  12. ENTRESTO [Concomitant]
     Active Substance: SACUBITRIL\VALSARTAN
  13. FUROSEMIDE. [Concomitant]
     Active Substance: FUROSEMIDE
  14. ISOSORB DIN [Concomitant]
  15. NYSTATIN. [Concomitant]
     Active Substance: NYSTATIN
  16. OMEPRAZOLE. [Concomitant]
     Active Substance: OMEPRAZOLE
  17. POT CL MICRO [Concomitant]
  18. PREDNISONE. [Concomitant]
     Active Substance: PREDNISONE
  19. SPIRONOLACT [Concomitant]
     Active Substance: SPIRONOLACTONE
  20. INSULIN LISPR [Concomitant]
  21. METOPROL SUC [Concomitant]
  22. NYSTOP [Concomitant]
     Active Substance: NYSTATIN
  23. TRAMADOL HCL [Concomitant]
     Active Substance: TRAMADOL HYDROCHLORIDE
  24. ESBRIET [Suspect]
     Active Substance: PIRFENIDONE
     Indication: IDIOPATHIC PULMONARY FIBROSIS
     Route: 048
     Dates: start: 20181130
  25. CEFDINIR. [Concomitant]
     Active Substance: CEFDINIR
  26. DOCYCYCL HYC [Concomitant]
  27. LEVOCETIRIZI [Concomitant]
  28. BENZONATATE. [Concomitant]
     Active Substance: BENZONATATE
  29. FAMOTINE [Concomitant]
     Active Substance: FAMOTINE
  30. HYD POL/CPM [Concomitant]

REACTIONS (1)
  - Hospitalisation [None]
